FAERS Safety Report 6263815-3 (Version None)
Quarter: 2009Q3

REPORT INFORMATION
  Report Type: 
  Country: None (occurrence: None)
  Receive Date: 20090710
  Receipt Date: 20090629
  Transmission Date: 20100115
  Serious: Yes (Hospitalization)
  Sender: FDA-Public Use
  Company Number: US-JNJFOC-20090609727

PATIENT
  Sex: Female
  Weight: 67.13 kg

DRUGS (9)
  1. REMICADE [Suspect]
     Indication: CROHN'S DISEASE
     Route: 042
  2. REMICADE [Suspect]
     Indication: RHEUMATOID ARTHRITIS
     Route: 042
  3. PREDNISONE TAB [Concomitant]
     Indication: CROHN'S DISEASE
  4. PREDNISONE TAB [Concomitant]
     Indication: RHEUMATOID ARTHRITIS
  5. POTASSIUM CHLORIDE [Concomitant]
     Indication: BLOOD POTASSIUM DECREASED
  6. LIPITOR [Concomitant]
     Indication: BLOOD CHOLESTEROL INCREASED
  7. VITAMIN [Concomitant]
     Indication: ROUTINE HEALTH MAINTENANCE
  8. TRIAMTERENE [Concomitant]
     Indication: HYPERTENSION
  9. ASACOL [Concomitant]
     Indication: CROHN'S DISEASE

REACTIONS (2)
  - AORTIC VALVE STENOSIS [None]
  - CROHN'S DISEASE [None]
